FAERS Safety Report 12184848 (Version 6)
Quarter: 2016Q2

REPORT INFORMATION
  Report Type: Spontaneous
  Country: JP (occurrence: JP)
  Receive Date: 20160316
  Receipt Date: 20160502
  Transmission Date: 20160815
  Serious: Yes (Other)
  Sender: FDA-Public Use
  Company Number: JP-ACTAVIS-2016-05481

PATIENT
  Age: 15 Year
  Sex: Male
  Weight: 60 kg

DRUGS (13)
  1. FAMOTIDINE. [Concomitant]
     Active Substance: FAMOTIDINE
     Indication: PRODUCT USED FOR UNKNOWN INDICATION
     Dosage: 20 MG, BID
     Route: 042
  2. DOXORUBICIN (UNKNOWN) [Suspect]
     Active Substance: DOXORUBICIN
     Indication: RHABDOMYOSARCOMA
     Dosage: 37.5 MG/M2, CYCLICAL, DAYS 1+2
     Route: 042
  3. ETOPOSIDE (UNKNOWN) [Interacting]
     Active Substance: ETOPOSIDE
     Indication: RHABDOMYOSARCOMA
     Dosage: 100 MG/M2, CYCLICAL, DAY 1+5
     Route: 042
  4. CYCLOPHOSPHAMIDE. [Suspect]
     Active Substance: CYCLOPHOSPHAMIDE
     Indication: RHABDOMYOSARCOMA
     Dosage: 1200 MG/M2, CYCLICAL, DAY 1
     Route: 042
  5. VINCRISTINE (UNKNOWN) [Suspect]
     Active Substance: VINCRISTINE
     Indication: RHABDOMYOSARCOMA
     Dosage: 1.5 MG/M2, CYCLICAL, ON DAY1
     Route: 042
  6. MESNA. [Concomitant]
     Active Substance: MESNA
     Dosage: 600 MG, Q6H (ON DAYS 1-5 IN IE CHEMOTHERAPY)
     Route: 042
  7. APREPITANT. [Concomitant]
     Active Substance: APREPITANT
     Indication: PROPHYLAXIS OF NAUSEA AND VOMITING
     Dosage: 125 MG, DAILY, DAY1
     Route: 065
  8. WARFARIN (UNKNOWN) [Interacting]
     Active Substance: WARFARIN
     Indication: CEREBRAL ARTERY OCCLUSION
     Dosage: 2 MG, DAILY (DURING THE FIRST CYCLE OF VDC CHEMOTHERAPY)
     Route: 048
  9. IFOSFAMIDE. [Interacting]
     Active Substance: IFOSFAMIDE
     Indication: RHABDOMYOSARCOMA
     Dosage: 1800 MG/M2, CYCLICAL, DAYS 1+5
     Route: 042
  10. ONDANSETRON [Concomitant]
     Active Substance: ONDANSETRON
     Indication: PRODUCT USED FOR UNKNOWN INDICATION
     Dosage: 4 MG, BID
     Route: 042
  11. DEXAMETHASONE. [Concomitant]
     Active Substance: DEXAMETHASONE
     Indication: PRODUCT USED FOR UNKNOWN INDICATION
     Dosage: 3.3 MG, BID
     Route: 042
  12. MESNA. [Concomitant]
     Active Substance: MESNA
     Indication: CYSTITIS HAEMORRHAGIC
     Dosage: 600 MG, Q6H (ON DAY 1 IN VDC CHEMOTHERAPY)
     Route: 042
  13. APREPITANT. [Concomitant]
     Active Substance: APREPITANT
     Dosage: 80 MG, DAILY, DAYS 2+3
     Route: 065

REACTIONS (4)
  - Drug interaction [Unknown]
  - International normalised ratio increased [Recovered/Resolved]
  - Cerebral artery occlusion [Unknown]
  - Cytopenia [Unknown]
